FAERS Safety Report 8515463-X (Version None)
Quarter: 2012Q3

REPORT INFORMATION
  Report Type: 
  Country: None (occurrence: None)
  Receive Date: 20120717
  Receipt Date: 20120705
  Transmission Date: 20120928
  Serious: Yes (Other)
  Sender: FDA-Public Use
  Company Number: BR-ELI_LILLY_AND_COMPANY-BR201207001887

PATIENT
  Sex: Male
  Weight: 79 kg

DRUGS (5)
  1. CONCOR [Concomitant]
     Dosage: 1 DF, EACH MORNING
     Route: 065
  2. ASPIRIN [Concomitant]
     Dosage: 1 DF, OTHER
     Route: 065
  3. CRESTOR [Concomitant]
     Dosage: 1 DF, EACH EVENING
     Route: 065
  4. HUMALOG MIX 50/50 [Suspect]
     Indication: DIABETES MELLITUS MANAGEMENT
     Dosage: 36 IU, EACH MORNING
     Route: 065
     Dates: start: 20090101
  5. HUMALOG MIX 50/50 [Suspect]
     Dosage: 26 IU, EACH EVENING
     Route: 065
     Dates: start: 20090101

REACTIONS (1)
  - CARDIOVASCULAR DISORDER [None]
